FAERS Safety Report 10400755 (Version 1)
Quarter: 2014Q1

REPORT INFORMATION
  Report Type: Spontaneous
  Country: US (occurrence: None)
  Receive Date: 20130815
  Receipt Date: 20130815
  Transmission Date: 20141002
  Serious: Yes (Other)
  Sender: FDA-Public Use
  Company Number: ADR-2012-00181

PATIENT
  Sex: Male

DRUGS (4)
  1. BACLOFEN INTRATHECAL (BACLOFEN INJECTION) [Suspect]
     Indication: PAIN
     Dosage: UNK DOSE INJECTION INTRATHECAL
  2. BACLOFEN INTRATHECAL (BACLOFEN INJECTION) [Suspect]
     Indication: LUMBAR RADICULOPATHY
     Dosage: UNK DOSE INJECTION INTRATHECAL
  3. MORPHINE [Concomitant]
  4. BUPIVACAINE [Concomitant]

REACTIONS (7)
  - Pyrexia [None]
  - Pain [None]
  - Drug withdrawal syndrome [None]
  - Underdose [None]
  - Influenza like illness [None]
  - Malaise [None]
  - Musculoskeletal stiffness [None]
